FAERS Safety Report 8471074-6 (Version None)
Quarter: 2012Q2

REPORT INFORMATION
  Report Type: 
  Country: None (occurrence: None)
  Receive Date: 20120627
  Receipt Date: 20120315
  Transmission Date: 20120825
  Serious: Yes (Disabling)
  Sender: FDA-Public Use
  Company Number: US-GLAXOSMITHKLINE-A0963757A

PATIENT
  Age: 83 Year
  Sex: Male

DRUGS (16)
  1. GEODON [Concomitant]
  2. AMLODIPINE [Concomitant]
  3. METOPROLOL TARTRATE [Concomitant]
  4. NYSTATIN OINTMENT [Concomitant]
  5. UNKNOWN [Concomitant]
  6. EXTRA STRENGTH TYLENOL [Concomitant]
  7. NYSTATIN [Concomitant]
  8. LAMICTAL XR [Suspect]
     Indication: CONVULSION
     Dosage: 50MG PER DAY
     Route: 048
     Dates: start: 20120101, end: 20120101
  9. SIMVASTATIN [Concomitant]
  10. CELEXA [Concomitant]
  11. BLEPHAMIDE [Concomitant]
  12. DILANTIN [Concomitant]
  13. NEXIUM [Concomitant]
  14. ATIVAN [Concomitant]
  15. VERSED [Concomitant]
  16. PRANDIN [Concomitant]

REACTIONS (1)
  - SOMNOLENCE [None]
